FAERS Safety Report 9745762 (Version 2)
Quarter: 2014Q1

REPORT INFORMATION
  Report Type: Spontaneous
  Country: NO (occurrence: NO)
  Receive Date: 20131211
  Receipt Date: 20140115
  Transmission Date: 20141002
  Serious: Yes (Death, Life-Threatening)
  Sender: FDA-Public Use
  Company Number: PHHY2013NO141077

PATIENT
  Age: 20 Year
  Sex: Female

DRUGS (21)
  1. TRAMADOL [Suspect]
     Indication: DEPRESSION
  2. ATARAX [Suspect]
     Indication: DEPRESSION
  3. PINEX FORTE [Suspect]
     Indication: DEPRESSION
  4. VIVAL [Suspect]
     Indication: DEPRESSION
  5. TRUXAL [Suspect]
     Indication: PRODUCT USED FOR UNKNOWN INDICATION
  6. NOZINAN [Suspect]
     Indication: DEPRESSION
  7. IMOVANE [Suspect]
     Indication: DEPRESSION
     Route: 048
  8. SOBRIL [Suspect]
  9. LAMICTAL [Suspect]
     Indication: DEPRESSION
  10. NOBLIGAN [Suspect]
     Indication: DEPRESSION
  11. SAROTEX [Suspect]
     Indication: DEPRESSION
  12. ORFIRIL [Suspect]
     Indication: DEPRESSION
  13. CIPRALEX [Suspect]
     Indication: DEPRESSION
  14. CATAPRESAN [Suspect]
     Indication: DEPRESSION
  15. OXYNORM [Suspect]
     Indication: DEPRESSION
  16. SEROQUEL [Suspect]
     Indication: DEPRESSION
  17. RIVOTRIL [Suspect]
     Indication: DEPRESSION
  18. REMERON [Suspect]
     Indication: DEPRESSION
  19. CIPRAMIL [Suspect]
  20. CYANOCOBALAMIN [Concomitant]
  21. DIAMORPHINE [Concomitant]

REACTIONS (2)
  - Completed suicide [Fatal]
  - Self injurious behaviour [Unknown]
